FAERS Safety Report 9246526 (Version 1)
Quarter: 2013Q2

REPORT INFORMATION
  Report Type: Spontaneous
  Country: US (occurrence: US)
  Receive Date: 20130422
  Receipt Date: 20130422
  Transmission Date: 20140414
  Serious: Yes (Other)
  Sender: FDA-Public Use
  Company Number: US-009507513-1304USA009543

PATIENT
  Age: 52 Year
  Sex: Female

DRUGS (3)
  1. EMEND [Suspect]
     Indication: PREMEDICATION
     Dosage: 150 MG, ONCE
     Route: 048
     Dates: start: 20130417, end: 20130417
  2. ALOXI [Concomitant]
  3. DECADRON (DEXAMETHASONE) [Concomitant]

REACTIONS (3)
  - Chest pain [Recovered/Resolved]
  - Flushing [Recovered/Resolved]
  - Dyspnoea [Recovered/Resolved]
